FAERS Safety Report 20301573 (Version 2)
Quarter: 2022Q1

REPORT INFORMATION
  Report Type: Report from Study
  Country: CN (occurrence: CN)
  Receive Date: 20220105
  Receipt Date: 20220118
  Transmission Date: 20220423
  Serious: Yes (Hospitalization)
  Sender: FDA-Public Use
  Company Number: CN-JAZZ-2021-CN-018278

PATIENT
  Age: 58 Year
  Sex: Male
  Weight: 82.7 kg

DRUGS (11)
  1. LURBINECTEDIN [Suspect]
     Active Substance: LURBINECTEDIN
     Indication: Small cell lung cancer
     Dosage: 5.8 MILLIGRAM
     Route: 042
     Dates: start: 20210724, end: 20210724
  2. LURBINECTEDIN [Suspect]
     Active Substance: LURBINECTEDIN
     Dosage: 5.8 MILLIGRAM
     Route: 042
     Dates: start: 20210909, end: 20210909
  3. LURBINECTEDIN [Suspect]
     Active Substance: LURBINECTEDIN
     Dosage: 4.7 MILLIGRAM
     Route: 042
     Dates: start: 20210930, end: 20210930
  4. LURBINECTEDIN [Suspect]
     Active Substance: LURBINECTEDIN
     Dosage: 4.7 MILLIGRAM
     Route: 042
     Dates: start: 20211021, end: 20211021
  5. LURBINECTEDIN [Suspect]
     Active Substance: LURBINECTEDIN
     Dosage: 4.7 MILLIGRAM
     Route: 042
     Dates: start: 20211110, end: 20211110
  6. LURBINECTEDIN [Suspect]
     Active Substance: LURBINECTEDIN
     Dosage: 4.7 MILLIGRAM
     Route: 042
     Dates: start: 20211203, end: 20211203
  7. LURBINECTEDIN [Suspect]
     Active Substance: LURBINECTEDIN
     Dosage: 4.9 MILLIGRAM
     Route: 042
     Dates: start: 20211227, end: 20211227
  8. INDAPAMIDE [Concomitant]
     Active Substance: INDAPAMIDE
     Dosage: UNK
  9. ATORVASTATIN CALCIUM [Concomitant]
     Active Substance: ATORVASTATIN CALCIUM
     Dosage: UNK
  10. GLIMEPIRIDE [Concomitant]
     Active Substance: GLIMEPIRIDE
     Dosage: UNK
  11. METFORMIN HYDROCHLORIDE [Concomitant]
     Active Substance: METFORMIN HYDROCHLORIDE
     Dosage: UNK

REACTIONS (5)
  - Oedema peripheral [Recovered/Resolved]
  - Platelet count decreased [Recovered/Resolved]
  - Platelet count decreased [Recovered/Resolved]
  - Platelet count decreased [Recovered/Resolved]
  - Platelet count decreased [Not Recovered/Not Resolved]

NARRATIVE: CASE EVENT DATE: 20210917
